FAERS Safety Report 5762538-4 (Version None)
Quarter: 2008Q2

REPORT INFORMATION
  Report Type: 
  Country: None (occurrence: None)
  Receive Date: 20080609
  Receipt Date: 20080530
  Transmission Date: 20081010
  Serious: Yes (Other)
  Sender: FDA-Public Use
  Company Number: B0361603A

PATIENT
  Age: 33 Year
  Sex: Female

DRUGS (9)
  1. PAROXETINE HCL [Suspect]
     Route: 065
     Dates: start: 19960118
  2. PRIADEL [Suspect]
     Indication: DEPRESSION
     Dates: start: 19960403
  3. CARBAMAZEPINE [Concomitant]
     Dates: start: 19970512
  4. LITHIUM CARBONATE [Concomitant]
     Indication: DEPRESSION
     Dates: start: 19960122
  5. VENLAFAXINE HCL [Concomitant]
     Dates: start: 19960206, end: 19960209
  6. THIORIDAZINE HCL [Concomitant]
     Indication: AGITATION
     Dates: start: 19960301
  7. AMLODIPINE [Concomitant]
     Indication: HYPERTENSION
     Dosage: 5MG PER DAY
     Dates: start: 19960401
  8. ZIMOVANE [Concomitant]
     Dates: start: 19970614
  9. MOCLOBEMIDE [Concomitant]
     Dosage: 150MG TWICE PER DAY
     Dates: start: 19970625, end: 19970630

REACTIONS (18)
  - AGITATION [None]
  - ANXIETY [None]
  - DEPRESSION [None]
  - DIARRHOEA [None]
  - DIZZINESS [None]
  - EMOTIONAL DISTRESS [None]
  - MALAISE [None]
  - NAUSEA [None]
  - OVERDOSE [None]
  - RESTLESSNESS [None]
  - SOMNOLENCE [None]
  - SUICIDAL IDEATION [None]
  - SUICIDE ATTEMPT [None]
  - TEARFULNESS [None]
  - THERAPEUTIC AGENT TOXICITY [None]
  - TREMOR [None]
  - VOMITING [None]
  - WITHDRAWAL SYNDROME [None]
